FAERS Safety Report 9912655 (Version 1)
Quarter: 2014Q1

REPORT INFORMATION
  Report Type: Spontaneous
  Country: SE (occurrence: None)
  Receive Date: 20140212
  Receipt Date: 20140212
  Transmission Date: 20141002
  Serious: Yes (Death)
  Sender: FDA-Public Use
  Company Number: 2014-1000970

PATIENT
  Age: 76 Year
  Sex: Male

DRUGS (3)
  1. CITALOPRAM [Suspect]
  2. ZOPICLONE [Suspect]
  3. ETHANOL [Suspect]

REACTIONS (3)
  - Flatulence [None]
  - Completed suicide [None]
  - Poisoning [None]
